FAERS Safety Report 6873837-7 (Version None)
Quarter: 2010Q3

REPORT INFORMATION
  Report Type: 
  Country: None (occurrence: None)
  Receive Date: 20100723
  Receipt Date: 20090401
  Transmission Date: 20110219
  Serious: No
  Sender: FDA-Public Use
  Company Number: US-PFIZER INC-2009179249

PATIENT
  Sex: Female
  Weight: 61.224 kg

DRUGS (3)
  1. CHANTIX [Suspect]
     Indication: SMOKING CESSATION THERAPY
     Dosage: 0.5 MG, 1X/DAY
     Dates: start: 20080201, end: 20080201
  2. CHANTIX [Suspect]
     Dosage: UNK
     Dates: start: 20080101, end: 20080101
  3. ZOLOFT [Suspect]
     Indication: DEPRESSION
     Dates: start: 20080101, end: 20080101

REACTIONS (2)
  - DEPRESSION [None]
  - DRUG INEFFECTIVE [None]
